FAERS Safety Report 18910523 (Version 1)
Quarter: 2021Q1

REPORT INFORMATION
  Report Type: Spontaneous
  Country: FR (occurrence: FR)
  Receive Date: 20210218
  Receipt Date: 20210218
  Transmission Date: 20210420
  Serious: Yes (Hospitalization, Other)
  Sender: FDA-Public Use
  Company Number: FR-CHEPLA-C20210844

PATIENT
  Age: 37 Year
  Sex: Female
  Weight: 65 kg

DRUGS (13)
  1. VALACICLOVIR 500MG [Concomitant]
     Active Substance: VALACYCLOVIR HYDROCHLORIDE
     Dosage: ONE TABLET IN THE MORNING
  2. CYTARABINE SANDOZ [Suspect]
     Active Substance: CYTARABINE
     Indication: LYMPHOMA
     Dosage: DAY 2,3,4; 200MG/M2 OR A DOSE OF 348MG FROM D?6 TO D?3
     Dates: start: 20201212, end: 20201214
  3. METOCLOPRAMIDE. [Concomitant]
     Active Substance: METOCLOPRAMIDE
  4. PANTOPRAZOLE [Concomitant]
     Active Substance: PANTOPRAZOLE
  5. ETOPOPHOS [Suspect]
     Active Substance: ETOPOSIDE PHOSPHATE
     Indication: LYMPHOMA
     Dosage: DAY 2,3,4; 200MG/M2 OR A DOSE OF 348MG FROM D?6 TO D?3
     Dates: start: 20201212, end: 20201214
  6. BACTRIM [Concomitant]
     Active Substance: SULFAMETHOXAZOLE\TRIMETHOPRIM
  7. DESOGESTREL [Concomitant]
     Active Substance: DESOGESTREL
  8. MOVICOL [Concomitant]
     Active Substance: POLYETHYLENE GLYCOL 3350\POTASSIUM CHLORIDE\SODIUM BICARBONATE\SODIUM CHLORIDE
  9. EXACYL [Concomitant]
     Active Substance: TRANEXAMIC ACID
     Dosage: EVERY 8 HOURS
  10. MELPHALAN TILLOMED [Suspect]
     Active Substance: MELPHALAN
     Indication: LYMPHOMA
     Dosage: DAY 5, 140MG/M2 OR A DOSE OF 243.6MG ON D?2
     Dates: start: 20201215, end: 20201215
  11. BICNU [Suspect]
     Active Substance: CARMUSTINE
     Dosage: DAY 1, I.E. A DOSE OF 522MG AT D?7
  12. SPASFON [Concomitant]
     Indication: ABDOMINAL PAIN UPPER
  13. ADRENALINE [Concomitant]
     Active Substance: EPINEPHRINE
     Indication: OESOPHAGITIS

REACTIONS (4)
  - Mucosal inflammation [Recovered/Resolved]
  - Oesophagitis [Recovered/Resolved]
  - Haematemesis [Unknown]
  - B-cell aplasia [Unknown]

NARRATIVE: CASE EVENT DATE: 20201220
